FAERS Safety Report 6330080-8 (Version None)
Quarter: 2009Q3

REPORT INFORMATION
  Report Type: 
  Country: None (occurrence: None)
  Receive Date: 20090827
  Receipt Date: 20090819
  Transmission Date: 20100115
  Serious: Yes (Hospitalization, Disabling)
  Sender: FDA-Public Use
  Company Number: SE-BIOGENIDEC-2008BI017352

PATIENT
  Age: 37 Year
  Sex: Male

DRUGS (1)
  1. TYSABRI [Suspect]
     Indication: RELAPSING-REMITTING MULTIPLE SCLEROSIS
     Route: 042
     Dates: start: 20070117, end: 20080627

REACTIONS (10)
  - DEPRESSION [None]
  - IMMUNE RECONSTITUTION SYNDROME [None]
  - MOTOR NEURONE DISEASE [None]
  - MULTIPLE SCLEROSIS [None]
  - MULTIPLE SCLEROSIS RELAPSE [None]
  - PROGRESSIVE MULTIFOCAL LEUKOENCEPHALOPATHY [None]
  - PYREXIA [None]
  - SIMPLE PARTIAL SEIZURES [None]
  - STATUS EPILEPTICUS [None]
  - VASOGENIC CEREBRAL OEDEMA [None]
